FAERS Safety Report 15680511 (Version 2)
Quarter: 2019Q1

REPORT INFORMATION
  Report Type: Report from Study
  Country: JP (occurrence: JP)
  Receive Date: 20181203
  Receipt Date: 20190318
  Transmission Date: 20190417
  Serious: Yes (Hospitalization)
  Sender: FDA-Public Use
  Company Number: JP-ACTELION-A-CH2016-142345

PATIENT
  Age: 30 Year
  Sex: Female

DRUGS (28)
  1. EPOPROSTENOL ACT [Suspect]
     Active Substance: EPOPROSTENOL
     Dosage: UNK
     Route: 042
     Dates: start: 20160615, end: 20170911
  2. EPOPROSTENOL ACT [Suspect]
     Active Substance: EPOPROSTENOL
     Dosage: 2.7 NG/KG, PER MIN
     Route: 042
     Dates: start: 20170914, end: 20170925
  3. EPOPROSTENOL ACT [Suspect]
     Active Substance: EPOPROSTENOL
     Dosage: 2.9 NG/KG, PER MIN
     Route: 042
  4. PREDONINE [Suspect]
     Active Substance: PREDNISOLONE
     Dosage: 9 MG, QD
     Route: 048
     Dates: start: 20181003
  5. FERROUS SULFATE. [Concomitant]
     Active Substance: FERROUS SULFATE
     Indication: PRODUCT USED FOR UNKNOWN INDICATION
  6. SODIUM CHLORIDE. [Concomitant]
     Active Substance: SODIUM CHLORIDE
  7. LASIX [Concomitant]
     Active Substance: FUROSEMIDE
  8. CALONAL [Concomitant]
     Active Substance: ACETAMINOPHEN
  9. EPOPROSTENOL ACT [Suspect]
     Active Substance: EPOPROSTENOL
     Indication: PULMONARY ARTERIAL HYPERTENSION
     Dosage: UNK
     Route: 042
     Dates: start: 20140825, end: 20160614
  10. EPOPROSTENOL ACT [Suspect]
     Active Substance: EPOPROSTENOL
     Dosage: 2.8 NG/KG, PER MIN
     Route: 042
     Dates: start: 20170912, end: 20170913
  11. EPOPROSTENOL ACT [Suspect]
     Active Substance: EPOPROSTENOL
     Dosage: 2.6 NG/KG, PER MIN
     Route: 042
     Dates: start: 20170926, end: 20171106
  12. ASVERIN (TIPEPIDINE HIBENZATE) [Concomitant]
     Active Substance: TIPEPIDINE HIBENZATE
  13. POTASSIUM IODIDE. [Concomitant]
     Active Substance: POTASSIUM IODIDE
  14. DEXALTIN [Concomitant]
     Active Substance: DEXAMETHASONE
  15. ADCIRCA [Concomitant]
     Active Substance: TADALAFIL
     Indication: PRODUCT USED FOR UNKNOWN INDICATION
     Dosage: UNK
  16. ALDACTONE A [Concomitant]
     Active Substance: SPIRONOLACTONE
     Indication: PRODUCT USED FOR UNKNOWN INDICATION
  17. PREDONINE [Suspect]
     Active Substance: PREDNISOLONE
     Indication: HYPERTHYROIDISM
     Dosage: 10 MG, QD
     Route: 048
     Dates: start: 20171205, end: 20181002
  18. ARTIST [Concomitant]
     Active Substance: CARVEDILOL
  19. APHTASOLON [Concomitant]
  20. EPOPROSTENOL ACT [Suspect]
     Active Substance: EPOPROSTENOL
     Dosage: 2.5 NG/KG, PER MIN
     Route: 042
     Dates: start: 20171107, end: 20171205
  21. EPOPROSTENOL ACT [Suspect]
     Active Substance: EPOPROSTENOL
     Dosage: 2.5 NG/KG, PER MIN
     Route: 042
     Dates: start: 20171206
  22. FUROSEMIDE. [Suspect]
     Active Substance: FUROSEMIDE
     Indication: RIGHT VENTRICULAR FAILURE
     Dosage: 20 MG, QD
     Route: 048
     Dates: start: 20160527, end: 20160801
  23. OXYGEN. [Concomitant]
     Active Substance: OXYGEN
     Indication: PRODUCT USED FOR UNKNOWN INDICATION
  24. OPSUMIT [Suspect]
     Active Substance: MACITENTAN
     Indication: PULMONARY ARTERIAL HYPERTENSION
     Dosage: 10 MG, OD
     Route: 048
     Dates: start: 20150807
  25. LEVOFLOXACIN. [Concomitant]
     Active Substance: LEVOFLOXACIN
  26. CARBOCISTEINE [Concomitant]
     Active Substance: CARBOCYSTEINE
  27. SOLULACT [Concomitant]
  28. SPIRONOLACTONE. [Concomitant]
     Active Substance: SPIRONOLACTONE

REACTIONS (22)
  - Device related infection [Recovered/Resolved]
  - Oropharyngeal pain [Recovered/Resolved]
  - Dental caries [Unknown]
  - Pyrexia [Recovered/Resolved]
  - Swelling [Recovered/Resolved]
  - Cardiac failure [Recovering/Resolving]
  - Hypokalaemia [Recovered/Resolved]
  - Root canal infection [Unknown]
  - Gastritis [Recovered/Resolved]
  - Abdominal pain [Recovered/Resolved]
  - Erythema [Recovered/Resolved]
  - Rhinorrhoea [Recovered/Resolved]
  - Cough [Recovered/Resolved]
  - Dermatitis contact [Recovered/Resolved]
  - Endodontic procedure [Unknown]
  - White blood cell count increased [Recovered/Resolved]
  - Periodontitis [Unknown]
  - Sputum retention [Recovered/Resolved]
  - Hyperthyroidism [Not Recovered/Not Resolved]
  - Thyroglobulin increased [Not Recovered/Not Resolved]
  - Catheter site erythema [Recovered/Resolved]
  - Insomnia [Recovering/Resolving]

NARRATIVE: CASE EVENT DATE: 20160526
